FAERS Safety Report 9839153 (Version 2)
Quarter: 2014Q1

REPORT INFORMATION
  Report Type: Report from Study
  Country: DK (occurrence: DK)
  Receive Date: 20140123
  Receipt Date: 20140127
  Transmission Date: 20141002
  Serious: Yes (Other)
  Sender: FDA-Public Use
  Company Number: CHNY2014DK000500

PATIENT
  Age: 19 Year
  Sex: Female

DRUGS (1)
  1. NICOTINELL GUM [Suspect]
     Indication: SMOKING CESSATION THERAPY
     Dosage: UNK
     Route: 065
     Dates: start: 2010, end: 2010

REACTIONS (2)
  - Obstructive airways disorder [Recovered/Resolved]
  - Dry mouth [Recovered/Resolved]
